FAERS Safety Report 8812541 (Version 1)
Quarter: 2012Q4

REPORT INFORMATION
  Report Type: 
  Country: US (occurrence: US)
  Receive Date: 20120927
  Receipt Date: 20120927
  Transmission Date: 20130627
  Serious: No
  Sender: FDA-Public Use
  Company Number: US-VERTEX PHARMACEUTICAL INC.-2012-020307

PATIENT
  Sex: Male

DRUGS (3)
  1. VX-950 [Suspect]
     Indication: HEPATITIS C
     Dosage: UNK
     Route: 048
     Dates: start: 20120521, end: 20120814
  2. PEGASYS [Concomitant]
     Indication: HEPATITIS C
     Dosage: UNK
     Dates: start: 20120521
  3. RIBAVIRIN [Concomitant]
     Indication: HEPATITIS C
     Dosage: UNK
     Dates: start: 20120521

REACTIONS (4)
  - Tachycardia [Unknown]
  - Dyspnoea [Unknown]
  - Neutropenia [Not Recovered/Not Resolved]
  - Anaemia [Not Recovered/Not Resolved]
